FAERS Safety Report 16161178 (Version 1)
Quarter: 2019Q2

REPORT INFORMATION
  Report Type: Spontaneous
  Country: JP (occurrence: JP)
  Receive Date: 20190405
  Receipt Date: 20190405
  Transmission Date: 20190711
  Serious: Yes (Hospitalization, Other)
  Sender: FDA-Public Use
  Company Number: JP-009507513-1808JPN003163J

PATIENT
  Age: 74 Year
  Sex: Female
  Weight: 54 kg

DRUGS (1)
  1. KEYTRUDA [Suspect]
     Active Substance: PEMBROLIZUMAB
     Indication: TRANSITIONAL CELL CANCER OF THE RENAL PELVIS AND URETER
     Dosage: 200 MILLIGRAM, Q3W
     Route: 041
     Dates: start: 20180528, end: 20180620

REACTIONS (2)
  - Renal disorder [Recovering/Resolving]
  - IgA nephropathy [Unknown]

NARRATIVE: CASE EVENT DATE: 20180711
